FAERS Safety Report 7987761-X (Version None)
Quarter: 2011Q4

REPORT INFORMATION
  Report Type: 
  Country: None (occurrence: None)
  Receive Date: 20111216
  Receipt Date: 20101103
  Transmission Date: 20120403
  Serious: No
  Sender: FDA-Public Use
  Company Number: US-BRISTOL-MYERS SQUIBB COMPANY-15366347

PATIENT
  Sex: Male

DRUGS (1)
  1. ABILIFY [Suspect]
     Dosage: STARTED ON 5 MG AND TITRATED UP TO 10 MG.

REACTIONS (2)
  - GAIT DISTURBANCE [None]
  - WEIGHT INCREASED [None]
